FAERS Safety Report 8008847-X (Version None)
Quarter: 2011Q4

REPORT INFORMATION
  Report Type: 
  Country: None (occurrence: None)
  Receive Date: 20111221
  Receipt Date: 20111206
  Transmission Date: 20120403
  Serious: Yes (Hospitalization)
  Sender: FDA-Public Use
  Company Number: 2011SGN00344

PATIENT
  Age: 33 Year
  Sex: Female

DRUGS (3)
  1. ENTECAVIR (ENTECAVIR) [Concomitant]
  2. ADCETRIS [Suspect]
     Indication: HODGKIN'S DISEASE
     Dosage: 2
  3. TENOFOVIR (TENOFOVIR) [Concomitant]

REACTIONS (6)
  - CONSTIPATION [None]
  - ORTHOSTATIC HYPOTENSION [None]
  - DIARRHOEA [None]
  - ABDOMINAL DISTENSION [None]
  - RENAL FAILURE [None]
  - VOMITING [None]
